APPROVED DRUG PRODUCT: ETRAVIRINE
Active Ingredient: ETRAVIRINE
Strength: 100MG
Dosage Form/Route: TABLET;ORAL
Application: A219152 | Product #001 | TE Code: AB
Applicant: BIONPHARMA INC
Approved: Oct 2, 2025 | RLD: No | RS: No | Type: RX